FAERS Safety Report 7193709-0 (Version None)
Quarter: 2010Q4

REPORT INFORMATION
  Report Type: 
  Country: None (occurrence: None)
  Receive Date: 20101223
  Receipt Date: 20100909
  Transmission Date: 20110411
  Serious: No
  Sender: FDA-Public Use
  Company Number: US-AMGEN-KDL437179

PATIENT

DRUGS (10)
  1. ENBREL [Suspect]
     Indication: PRODUCT USED FOR UNKNOWN INDICATION
     Dosage: 50 MG, QWK
     Route: 058
  2. CALCIUM FOLINATE [Concomitant]
     Dosage: 10 MG, UNK
  3. METHOTREXATE [Concomitant]
     Dosage: 2.5 MG, UNK
  4. LORATADINE [Concomitant]
     Dosage: 10 MG, UNK
  5. ALBUTEROL SULFATE [Concomitant]
     Dosage: 90 A?G, UNK
  6. FLUTICASONE PROPIONATE [Concomitant]
     Dosage: UNK UNK, UNK
  7. LIDODERM [Concomitant]
  8. MULTI-VITAMINS [Concomitant]
     Dosage: UNK UNK, UNK
  9. CALCIUM [Concomitant]
     Dosage: UNK UNK, UNK
  10. BUDESONIDE [Concomitant]
     Dosage: 200 A?G, UNK

REACTIONS (4)
  - ARTHRALGIA [None]
  - DRY MOUTH [None]
  - FATIGUE [None]
  - NEURALGIA [None]
